FAERS Safety Report 16641935 (Version 1)
Quarter: 2019Q3

REPORT INFORMATION
  Report Type: Spontaneous
  Country: IT (occurrence: IT)
  Receive Date: 20190729
  Receipt Date: 20190729
  Transmission Date: 20191004
  Serious: Yes (Other)
  Sender: FDA-Public Use
  Company Number: IT-PFIZER INC-2019316733

PATIENT
  Age: 56 Year
  Sex: Female

DRUGS (10)
  1. NEURABEN [Concomitant]
     Active Substance: CYANOCOBALAMIN\PYRIDOXINE\THIAMINE
     Dosage: UNK
  2. TAZOCIN [Suspect]
     Active Substance: PIPERACILLIN SODIUM\TAZOBACTAM SODIUM
     Indication: ANTIBIOTIC THERAPY
     Dosage: UNK
     Route: 042
  3. PANTOPRAZOLE [Concomitant]
     Active Substance: PANTOPRAZOLE
     Dosage: UNK
  4. NICOZID [Concomitant]
     Active Substance: ISONIAZID
     Dosage: UNK
  5. LASIX [Concomitant]
     Active Substance: FUROSEMIDE
     Dosage: UNK
  6. ZOLOFT [Concomitant]
     Active Substance: SERTRALINE HYDROCHLORIDE
     Dosage: UNK
     Route: 048
  7. CONGESCOR [Concomitant]
     Active Substance: BISOPROLOL
     Dosage: UNK
     Route: 048
  8. LAEVOLAC EPS [Concomitant]
     Dosage: UNK
     Route: 048
  9. LYRICA [Concomitant]
     Active Substance: PREGABALIN
     Dosage: UNK
     Route: 048
  10. LUVION [CANRENOIC ACID] [Concomitant]
     Active Substance: CANRENOIC ACID
     Dosage: UNK

REACTIONS (5)
  - Stomatitis [Recovered/Resolved with Sequelae]
  - Oral pruritus [Recovered/Resolved with Sequelae]
  - Dermatitis bullous [Recovered/Resolved with Sequelae]
  - Pruritus genital [Recovered/Resolved with Sequelae]
  - Vulvovaginal inflammation [Recovered/Resolved with Sequelae]

NARRATIVE: CASE EVENT DATE: 20190108
